FAERS Safety Report 7786531-5 (Version None)
Quarter: 2011Q3

REPORT INFORMATION
  Report Type: 
  Country: None (occurrence: None)
  Receive Date: 20110929
  Receipt Date: 20110923
  Transmission Date: 20111222
  Serious: Yes (Hospitalization)
  Sender: FDA-Public Use
  Company Number: US-GLAXOSMITHKLINE-A0945817A

PATIENT
  Age: 77 Year
  Sex: Female

DRUGS (9)
  1. ADVAIR DISKUS 100/50 [Suspect]
     Indication: CHRONIC OBSTRUCTIVE PULMONARY DISEASE
     Dosage: 2PUFF TWICE PER DAY
     Route: 055
     Dates: start: 20100301
  2. FISH OIL [Concomitant]
  3. SPIRIVA [Suspect]
     Dates: start: 20110909
  4. CRESTOR [Concomitant]
  5. AMITRIPTYLINE HCL [Concomitant]
  6. LASIX [Concomitant]
  7. LEVOTHYROXINE [Concomitant]
  8. VENTOLIN HFA [Suspect]
     Indication: BRONCHOSPASM
     Route: 055
  9. KLOR-CON [Concomitant]

REACTIONS (6)
  - DYSPNOEA [None]
  - BRONCHITIS [None]
  - DEHYDRATION [None]
  - PNEUMONIA [None]
  - FEELING COLD [None]
  - CHRONIC OBSTRUCTIVE PULMONARY DISEASE [None]
